FAERS Safety Report 8611718-9 (Version None)
Quarter: 2012Q3

REPORT INFORMATION
  Report Type: 
  Country: None (occurrence: None)
  Receive Date: 20120822
  Receipt Date: 20120814
  Transmission Date: 20120928
  Serious: Yes (Hospitalization)
  Sender: FDA-Public Use
  Company Number: US-BAYER-2012-021725

PATIENT
  Age: 29 Year
  Sex: Female
  Weight: 57.143 kg

DRUGS (6)
  1. SULFONAMIDE [Concomitant]
     Indication: URINARY TRACT INFECTION
  2. DROSPIRENONE AND ETHINYL ESTRADIOL [Suspect]
     Indication: CONTRACEPTION
     Dosage: UNK
     Dates: start: 20091001, end: 20100701
  3. CEPHALEXIN [Concomitant]
     Indication: URINARY TRACT INFECTION
  4. YASMIN [Suspect]
     Indication: CONTRACEPTION
     Dosage: UNK
     Dates: start: 20021101, end: 20080701
  5. YASMIN [Suspect]
     Dosage: UNK
     Dates: start: 20081001, end: 20090901
  6. YAZ [Suspect]
     Indication: CONTRACEPTION
     Dosage: UNK
     Dates: start: 20080801, end: 20080901

REACTIONS (5)
  - CHOLECYSTITIS ACUTE [None]
  - GENERAL PHYSICAL HEALTH DETERIORATION [None]
  - EMOTIONAL DISTRESS [None]
  - PAIN [None]
  - ANXIETY [None]
